FAERS Safety Report 6196917-0 (Version None)
Quarter: 2009Q2

REPORT INFORMATION
  Report Type: 
  Country: None (occurrence: None)
  Receive Date: 20090518
  Receipt Date: 20090504
  Transmission Date: 20091009
  Serious: Yes (Hospitalization)
  Sender: FDA-Public Use
  Company Number: 2009S1007687

PATIENT
  Age: 54 Year
  Sex: Male

DRUGS (18)
  1. ACYCLOVIR [Suspect]
     Indication: INFECTION PROPHYLAXIS
     Dosage: 250 MG;INTRAVENOUS
     Route: 042
  2. SIMVASTATIN [Suspect]
     Indication: MYOCARDIAL INFARCTION
     Dosage: 40 MG; DAILY
  3. CYCLOSPORINE [Suspect]
     Indication: PROPHYLAXIS AGAINST GRAFT VERSUS HOST DISEASE
     Dosage: .5 MG; INTRAVENOUS; 1.5 MG; INTRAVENOUS;
     Route: 042
  4. RISPERIDONE [Suspect]
     Indication: PSYCHOTIC DISORDER
     Dosage: 1 MG; ORAL; DAILY
     Route: 048
  5. VORICONAZOLE (VORICONAZOLE) [Suspect]
     Indication: INFECTION PROPHYLAXIS
     Dosage: 200 MG; ORAL
     Route: 048
  6. BUSULFAN (BUSULFAN) (PREV.) [Concomitant]
  7. FLUDARABINE (FLUDARABINE) (PREV.) [Concomitant]
  8. IDARUBICIN (IDARUBICIN) (PREV.) [Concomitant]
  9. CYTARABINE (CYTARABINE) (PREV.) [Concomitant]
  10. ETOPOSIDE (ETOPOSIDE) (PREV.) [Concomitant]
  11. MITOXANTRONE (MITOXANTRONE) (PREV.) [Concomitant]
  12. PENTAMIDINE (PENTAMIDINE) (CON.) [Concomitant]
  13. IMMUNOGLOBULINS (IMMUNOGLOBULINS) (CON.) [Concomitant]
  14. METHOTREXATE (METHOTREXATE) (CON.) [Concomitant]
  15. MEROPENEM (MEROPENEM) (CON.) [Concomitant]
  16. TEICOPLANIN (TEICOPLANIN) (CON.) [Concomitant]
  17. ENALAPRIL (ENALAPRIL) (CON.) [Concomitant]
  18. ATENOLOL (ATENOLOL) (CON.) [Concomitant]

REACTIONS (11)
  - ACUTE MYELOID LEUKAEMIA [None]
  - CONFUSIONAL STATE [None]
  - DRUG INTERACTION [None]
  - HALLUCINATION [None]
  - MOTOR DYSFUNCTION [None]
  - MUSCULAR WEAKNESS [None]
  - MYALGIA [None]
  - PSYCHOTIC DISORDER [None]
  - RENAL FAILURE ACUTE [None]
  - RHABDOMYOLYSIS [None]
  - STEM CELL TRANSPLANT [None]
